FAERS Safety Report 18095913 (Version 2)
Quarter: 2021Q1

REPORT INFORMATION
  Report Type: Report from Study
  Country: CA (occurrence: CA)
  Receive Date: 20200731
  Receipt Date: 20210329
  Transmission Date: 20210419
  Serious: Yes (Hospitalization, Other)
  Sender: FDA-Public Use
  Company Number: CA-PFIZER INC-2020289415

PATIENT
  Age: 67 Year
  Sex: Female
  Weight: 108 kg

DRUGS (17)
  1. HYDROCORTISONE. [Suspect]
     Active Substance: HYDROCORTISONE
     Dosage: UNK
  2. COVERSYL PLUS HD [Suspect]
     Active Substance: INDAPAMIDE\PERINDOPRIL ERBUMINE
     Dosage: UNK
     Dates: start: 2009
  3. ORENCIA [Concomitant]
     Active Substance: ABATACEPT
     Route: 065
  4. RITUXIMAB. [Suspect]
     Active Substance: RITUXIMAB
     Indication: RHEUMATOID ARTHRITIS
     Dosage: 1000 MG, 1 EVERY 15 DAYS
     Route: 042
     Dates: start: 20190819
  5. SYMBICORT [Concomitant]
     Active Substance: BUDESONIDE\FORMOTEROL FUMARATE DIHYDRATE
  6. PREDNISONE. [Suspect]
     Active Substance: PREDNISONE
     Dosage: UNK
     Dates: start: 2013
  7. DILAUDID [Concomitant]
     Active Substance: HYDROMORPHONE HYDROCHLORIDE
  8. ATENOLOL. [Concomitant]
     Active Substance: ATENOLOL
  9. SOLU?MEDROL [Concomitant]
     Active Substance: METHYLPREDNISOLONE SODIUM SUCCINATE
     Dosage: 100 MG
     Route: 042
  10. VENTOLIN [Concomitant]
     Active Substance: ALBUTEROL SULFATE
  11. SPIRONOLACTONE. [Concomitant]
     Active Substance: SPIRONOLACTONE
  12. TYLENOL [Concomitant]
     Active Substance: ACETAMINOPHEN
     Dosage: 650 MG
     Route: 048
  13. ALENDRONATE SODIUM. [Concomitant]
     Active Substance: ALENDRONATE SODIUM
     Route: 065
  14. COMBIVENT [Concomitant]
     Active Substance: ALBUTEROL SULFATE\IPRATROPIUM BROMIDE
  15. ZOPICLONE [Concomitant]
     Active Substance: ZOPICLONE
  16. BENADRYL [Concomitant]
     Active Substance: DIPHENHYDRAMINE HYDROCHLORIDE
     Dosage: 50 MG
     Route: 048
  17. SPIRIVA [Concomitant]
     Active Substance: TIOTROPIUM BROMIDE MONOHYDRATE

REACTIONS (18)
  - Drug intolerance [Unknown]
  - Muscular weakness [Unknown]
  - Nasopharyngitis [Recovering/Resolving]
  - Blood pressure diastolic abnormal [Unknown]
  - Respiratory rate increased [Unknown]
  - Fall [Unknown]
  - Skin laceration [Recovering/Resolving]
  - Blood pressure fluctuation [Unknown]
  - Debridement [Recovering/Resolving]
  - Cough [Not Recovered/Not Resolved]
  - Joint swelling [Unknown]
  - Pain in extremity [Unknown]
  - Peripheral swelling [Unknown]
  - Blood pressure increased [Unknown]
  - Renal impairment [Unknown]
  - Weight decreased [Unknown]
  - Blood pressure diastolic increased [Unknown]
  - Blood pressure systolic increased [Unknown]

NARRATIVE: CASE EVENT DATE: 20191128
